FAERS Safety Report 24291305 (Version 1)
Quarter: 2024Q3

REPORT INFORMATION
  Report Type: Spontaneous
  Country: US (occurrence: None)
  Receive Date: 20240906
  Receipt Date: 20240906
  Transmission Date: 20241016
  Serious: No
  Sender: DOMPE FARMACEUTICI
  Company Number: US-FARMAPROD-202308-2297

PATIENT
  Age: 80 Year
  Sex: Female

DRUGS (22)
  1. OXERVATE [Suspect]
     Active Substance: CENEGERMIN-BKBJ
     Indication: Neurotrophic keratopathy
     Route: 047
     Dates: start: 20230731
  2. OXERVATE [Suspect]
     Active Substance: CENEGERMIN-BKBJ
  3. MOXIFLOXACIN [Concomitant]
     Active Substance: MOXIFLOXACIN
  4. MYRBETRIQ [Concomitant]
     Active Substance: MIRABEGRON
     Dosage: 24 HOURS
  5. VESICARE [Concomitant]
     Active Substance: SOLIFENACIN SUCCINATE
  6. YUPELRI [Concomitant]
     Active Substance: REVEFENACIN
     Dosage: 175 MCG / 3 ML, VIAL NEBULIZER
  7. ARMODAFINIL [Concomitant]
     Active Substance: ARMODAFINIL
  8. VENLAFAXINE HCL [Concomitant]
     Active Substance: VENLAFAXINE HYDROCHLORIDE
  9. METHYLPHENIDATE [Concomitant]
     Active Substance: METHYLPHENIDATE
     Dosage: 24 HOURS.
  10. MIRAPEX [Concomitant]
     Active Substance: PRAMIPEXOLE DIHYDROCHLORIDE
  11. CLOPIDOGREL [Concomitant]
     Active Substance: CLOPIDOGREL BISULFATE
  12. DULERA [Concomitant]
     Active Substance: FORMOTEROL FUMARATE DIHYDRATE\MOMETASONE FUROATE
     Dosage: 100-5 MCG HYDROFLUOROALKANE, AEROSOL WITH ADAPTER.
  13. TRAZODONE HCL [Concomitant]
     Active Substance: TRAZODONE HYDROCHLORIDE
  14. METOPROLOL SUCCINATE [Concomitant]
     Active Substance: METOPROLOL SUCCINATE
  15. LISINOPRIL [Concomitant]
     Active Substance: LISINOPRIL
  16. CALCIUM\VITAMIN D [Concomitant]
     Active Substance: CALCIUM\VITAMIN D
     Dosage: 500 MG-1000
  17. ACYCLOVIR [Concomitant]
     Active Substance: ACYCLOVIR
  18. ESTRADIOL [Concomitant]
     Active Substance: ESTRADIOL
     Dosage: WITH APPLICATOR.
  19. CYCLOSPORINE [Concomitant]
     Active Substance: CYCLOSPORINE
  20. ABILIFY [Concomitant]
     Active Substance: ARIPIPRAZOLE
  21. LIPITOR [Concomitant]
     Active Substance: ATORVASTATIN CALCIUM
  22. ALBUTEROL SULFATE [Concomitant]
     Active Substance: ALBUTEROL SULFATE

REACTIONS (3)
  - Eye pain [Not Recovered/Not Resolved]
  - Photophobia [Unknown]
  - Eyelid pain [Not Recovered/Not Resolved]

NARRATIVE: CASE EVENT DATE: 20230726
